FAERS Safety Report 7425953-9 (Version None)
Quarter: 2011Q2

REPORT INFORMATION
  Report Type: 
  Country: None (occurrence: None)
  Receive Date: 20110420
  Receipt Date: 20110330
  Transmission Date: 20111010
  Serious: Yes (Other)
  Sender: FDA-Public Use
  Company Number: US-BAYER-200934360NA

PATIENT
  Sex: Male

DRUGS (15)
  1. TRASYLOL [Suspect]
     Indication: MITRAL VALVE REPLACEMENT
  2. HEPARIN [Concomitant]
     Dosage: 35000 U, UNK
     Route: 042
     Dates: start: 20040803
  3. ISOFLURANE [Concomitant]
     Dosage: UNK
     Dates: start: 20040803
  4. DILTIAZEM [Concomitant]
  5. VECURONIUM BROMIDE [Concomitant]
     Dosage: 10 MG, UNK
     Dates: start: 20040803
  6. VIOXX [Concomitant]
  7. LIPITOR [Concomitant]
  8. ROCURONIUM [Concomitant]
     Dosage: UNK
     Dates: start: 20040803
  9. LISINOPRIL AND HYDROCHLOROTHIAZIDE [Concomitant]
  10. CEFUROXIME [Concomitant]
     Dosage: 1.5 G, UNK
     Route: 042
     Dates: start: 20040803
  11. TRASYLOL [Suspect]
     Indication: CORONARY ARTERY BYPASS
     Dosage: 1ML TEST DOSE, 100CC HUNG
     Dates: start: 20040803, end: 20040803
  12. AVANDIA [Concomitant]
  13. PLAVIX [Concomitant]
  14. SUFENTA PRESERVATIVE FREE [Concomitant]
     Dosage: UNK
     Dates: start: 20040803
  15. VERSED [Concomitant]
     Dosage: UNK
     Dates: start: 20040803

REACTIONS (12)
  - MULTI-ORGAN FAILURE [None]
  - RENAL FAILURE [None]
  - ANXIETY [None]
  - ANHEDONIA [None]
  - NERVOUSNESS [None]
  - INJURY [None]
  - EMOTIONAL DISTRESS [None]
  - UNEVALUABLE EVENT [None]
  - FEAR [None]
  - DEPRESSION [None]
  - RENAL INJURY [None]
  - PAIN [None]
